FAERS Safety Report 24718230 (Version 1)
Quarter: 2024Q4

REPORT INFORMATION
  Report Type: Spontaneous
  Country: CA (occurrence: CA)
  Receive Date: 20241210
  Receipt Date: 20241210
  Transmission Date: 20250114
  Serious: Yes (Life-Threatening, Hospitalization)
  Sender: PFIZER
  Company Number: CA-PFIZER INC-202400318755

PATIENT
  Age: 2 Month
  Sex: Female
  Weight: 5 kg

DRUGS (8)
  1. VINCRISTINE SULFATE [Suspect]
     Active Substance: VINCRISTINE SULFATE
     Indication: Acute lymphocytic leukaemia
     Dosage: 1 DF, WEEKLY
     Route: 042
  2. BLINCYTO [Concomitant]
     Active Substance: BLINATUMOMAB
  3. CYTARABINE [Concomitant]
     Active Substance: CYTARABINE
  4. DAUNORUBICIN [Concomitant]
     Active Substance: DAUNORUBICIN
  5. DEXAMETHASONE [Concomitant]
     Active Substance: DEXAMETHASONE
  6. METHOTREXATE [Concomitant]
     Active Substance: METHOTREXATE
  7. PREDNISONE [Concomitant]
     Active Substance: PREDNISONE
  8. PEGASPARGASE [Concomitant]
     Active Substance: PEGASPARGASE

REACTIONS (6)
  - Endotracheal intubation [Recovered/Resolved]
  - Laryngeal erythema [Recovered/Resolved]
  - Laryngeal oedema [Recovered/Resolved]
  - Stridor [Recovered/Resolved]
  - Toxicity to various agents [Recovered/Resolved]
  - Vocal cord paralysis [Recovered/Resolved]
